FAERS Safety Report 8461216-0 (Version None)
Quarter: 2012Q2

REPORT INFORMATION
  Report Type: 
  Country: None (occurrence: None)
  Receive Date: 20120323
  Receipt Date: 20111020
  Transmission Date: 20120825
  Serious: Yes (Other)
  Sender: FDA-Public Use
  Company Number: 163-21880-11102466

PATIENT
  Age: 75 Year
  Sex: Male

DRUGS (2)
  1. REVLIMID [Suspect]
     Indication: MULTIPLE MYELOMA
     Dosage: 10 MG, DAILY X 21 DAYS, PO, 10 MG, MON-FRI ONLY WEEKENDS OFF FOR 3 WEEKS, PO
     Route: 048
     Dates: start: 20110601
  2. REVLIMID [Suspect]
     Indication: MULTIPLE MYELOMA
     Dosage: 10 MG, DAILY X 21 DAYS, PO, 10 MG, MON-FRI ONLY WEEKENDS OFF FOR 3 WEEKS, PO
     Route: 048
     Dates: start: 20011001

REACTIONS (1)
  - NEUROPATHY PERIPHERAL [None]
